FAERS Safety Report 4839683-0 (Version None)
Quarter: 2005Q4

REPORT INFORMATION
  Report Type: 
  Country: None (occurrence: None)
  Receive Date: 20051129
  Receipt Date: 20050531
  Transmission Date: 20060501
  Serious: No
  Sender: FDA-Public Use
  Company Number: US-GLAXOSMITHKLINE-A0560975A

PATIENT
  Age: 49 Year
  Sex: Female
  Weight: 113.6 kg

DRUGS (4)
  1. WELLBUTRIN SR [Suspect]
     Indication: DRUG USE FOR UNKNOWN INDICATION
     Dosage: 100MG IN THE MORNING
     Route: 048
     Dates: start: 20020911, end: 20030908
  2. DEPAKOTE ER [Concomitant]
  3. XANAX [Concomitant]
  4. SEROQUEL [Concomitant]

REACTIONS (1)
  - TREMOR [None]
